FAERS Safety Report 13178373 (Version 1)
Quarter: 2017Q1

REPORT INFORMATION
  Report Type: Spontaneous
  Country: US (occurrence: US)
  Receive Date: 20170131
  Receipt Date: 20170131
  Transmission Date: 20170428
  Serious: Yes (Life-Threatening, Disabling)
  Sender: FDA-Public Use
  Company Number: None

PATIENT
  Age: 40 Year
  Sex: Female
  Weight: 110.25 kg

DRUGS (8)
  1. LORETIDINE [Concomitant]
  2. MAGNESIUM [Concomitant]
     Active Substance: MAGNESIUM
  3. ARMOUR THYROID [Concomitant]
     Active Substance: THYROID, PORCINE
  4. AMPLATZER CRIBRIFORM OCCLUDER [Concomitant]
  5. LEVAQUIN [Suspect]
     Active Substance: LEVOFLOXACIN
     Indication: PNEUMONIA
     Dosage: ?          QUANTITY:1 TABLET(S);?
     Route: 048
     Dates: start: 20160404, end: 20160405
  6. ALBUTEROL. [Concomitant]
     Active Substance: ALBUTEROL
  7. SINGULAR GENERIC [Concomitant]
  8. ASPIRIN. [Concomitant]
     Active Substance: ASPIRIN

REACTIONS (11)
  - Arthralgia [None]
  - Vomiting [None]
  - Palpitations [None]
  - Nausea [None]
  - Irritability [None]
  - Hypersensitivity [None]
  - Pain [None]
  - Confusional state [None]
  - Insomnia [None]
  - Memory impairment [None]
  - Dizziness [None]

NARRATIVE: CASE EVENT DATE: 20160404
